FAERS Safety Report 7203718 (Version 2)
Quarter: 2013Q3

REPORT INFORMATION
  Report Type: Spontaneous
  Country: None (occurrence: None)
  Receive Date: 20091120
  Receipt Date: 20130708
  Transmission Date: 20140515
  Serious: Yes (Hospitalization, Other)
  Sender: FDA-Public Use
  Company Number: AUR-APL-2009-00958

PATIENT
  Age: 48 Year
  Sex: Female

DRUGS (4)
  1. CLINDAMYCIN (CLINDAMYCIN) [Suspect]
     Indication: BRONCHITIS
     Dosage: ORAL
     Route: 048
  2. CHLORPHENIRAMINE [Suspect]
     Indication: BRONCHITIS
     Dosage: ORAL
     Route: 048
  3. BETAMETHASONE [Concomitant]
     Dosage: ORAL
  4. PARACETAMOL (PARACETAMOL) [Concomitant]
     Dosage: ORAL

REACTIONS (7)
  - Stevens-Johnson syndrome [None]
  - Cholestasis [None]
  - Headache [None]
  - Blood pressure increased [None]
  - Blood urea increased [None]
  - Blood sodium decreased [None]
  - Wrong drug administered [None]
